FAERS Safety Report 23816773 (Version 1)
Quarter: 2024Q2

REPORT INFORMATION
  Report Type: Spontaneous
  Country: US (occurrence: US)
  Receive Date: 20240504
  Receipt Date: 20240504
  Transmission Date: 20240715
  Serious: Yes (Other)
  Sender: FDA-Public Use
  Company Number: US-002147023-NVSC2024US091802

PATIENT
  Age: 61 Year
  Sex: Female

DRUGS (2)
  1. LEQVIO [Suspect]
     Active Substance: INCLISIRAN SODIUM
     Indication: Hyperlipidaemia
     Dosage: 284 MG, (OTHER, DAY 0, DAY 90 THEN EVERY 6 MONTHS) (LIQUID)
     Route: 058
     Dates: start: 20240101
  2. FAMOTIDINE [Concomitant]
     Active Substance: FAMOTIDINE
     Indication: Gastrooesophageal reflux disease
     Route: 065

REACTIONS (3)
  - Injection site urticaria [Not Recovered/Not Resolved]
  - Mouth swelling [Not Recovered/Not Resolved]
  - Swollen tongue [Not Recovered/Not Resolved]
